FAERS Safety Report 4711980-9 (Version None)
Quarter: 2005Q3

REPORT INFORMATION
  Report Type: 
  Country: None (occurrence: None)
  Receive Date: 20050711
  Receipt Date: 20050701
  Transmission Date: 20060218
  Serious: Yes (Other)
  Sender: FDA-Public Use
  Company Number: DISTRIBUTOR ID:5493

PATIENT
  Age: 25 Year
  Sex: Female

DRUGS (1)
  1. PRIMACARE ONE(R) [Suspect]
     Indication: MINERAL SUPPLEMENTATION
     Dosage: ONE TABLET BY MOUTH DAILY
     Route: 048
     Dates: start: 20050630

REACTIONS (4)
  - HYPERSENSITIVITY [None]
  - NAUSEA [None]
  - URTICARIA [None]
  - VOMITING [None]
